FAERS Safety Report 21687247 (Version 1)
Quarter: 2022Q4

REPORT INFORMATION
  Report Type: Spontaneous
  Country: CA (occurrence: CA)
  Receive Date: 20221206
  Receipt Date: 20221206
  Transmission Date: 20230113
  Serious: Yes (Other)
  Sender: FDA-Public Use
  Company Number: None

PATIENT
  Age: 53 Year
  Sex: Female

DRUGS (69)
  1. NITROGLYCERIN [Suspect]
     Active Substance: NITROGLYCERIN
     Indication: Oesophageal spasm
     Route: 065
  2. NITROGLYCERIN [Suspect]
     Active Substance: NITROGLYCERIN
     Indication: Product used for unknown indication
     Route: 065
  3. ACETAMINOPHEN [Suspect]
     Active Substance: ACETAMINOPHEN
     Indication: Product used for unknown indication
     Route: 065
  4. ACETAMINOPHEN\CAFFEINE\DIHYDROCODEINE BITARTRATE [Suspect]
     Active Substance: ACETAMINOPHEN\CAFFEINE\DIHYDROCODEINE BITARTRATE
     Indication: Pruritus
     Route: 065
  5. ALENDRONATE SODIUM [Suspect]
     Active Substance: ALENDRONATE SODIUM
     Indication: Product used for unknown indication
     Route: 065
  6. ALENDRONATE SODIUM\CHOLECALCIFEROL [Suspect]
     Active Substance: ALENDRONATE SODIUM\CHOLECALCIFEROL
     Indication: Osteoporosis postmenopausal
     Route: 065
  7. AMITRIPTYLINE [Suspect]
     Active Substance: AMITRIPTYLINE
     Indication: Depression
     Route: 065
  8. FUROSEMIDE [Suspect]
     Active Substance: FUROSEMIDE
     Indication: Fluid retention
     Route: 065
  9. FERROUS GLUCONATE [Suspect]
     Active Substance: FERROUS GLUCONATE
     Indication: Iron deficiency
     Route: 065
  10. SULFAMETHOXAZOLE\TRIMETHOPRIM [Suspect]
     Active Substance: SULFAMETHOXAZOLE\TRIMETHOPRIM
     Indication: Stomatitis
     Route: 065
  11. ASPIRIN [Concomitant]
     Active Substance: ASPIRIN
     Indication: Product used for unknown indication
     Route: 065
  12. ATROVENT HFA [Suspect]
     Active Substance: IPRATROPIUM BROMIDE
     Indication: Product used for unknown indication
     Route: 065
  13. AZITHROMYCIN DIHYDRATE [Concomitant]
     Active Substance: AZITHROMYCIN DIHYDRATE
     Indication: Product used for unknown indication
     Route: 065
  14. BREO ELLIPTA [Suspect]
     Active Substance: FLUTICASONE FUROATE\VILANTEROL TRIFENATATE
     Indication: Product used for unknown indication
     Route: 065
  15. BUPROPION [Suspect]
     Active Substance: BUPROPION
     Indication: Urticaria
     Route: 065
  16. CAFFEINE [Suspect]
     Active Substance: CAFFEINE
     Indication: Product used for unknown indication
     Route: 065
  17. CEFUROXIME AXETIL [Suspect]
     Active Substance: CEFUROXIME AXETIL
     Indication: Product used for unknown indication
     Route: 065
  18. CELEBREX [Suspect]
     Active Substance: CELECOXIB
     Indication: Oesophageal pain
     Route: 065
  19. CEPHALEXIN [Suspect]
     Active Substance: CEPHALEXIN
     Indication: Vomiting
     Route: 065
  20. CIPRO [Suspect]
     Active Substance: CIPROFLOXACIN HYDROCHLORIDE
     Indication: Urticaria
     Route: 065
  21. CIPROFLOXACIN [Suspect]
     Active Substance: CIPROFLOXACIN
     Indication: Product used for unknown indication
     Route: 065
  22. CLONIDINE [Concomitant]
     Active Substance: CLONIDINE
     Indication: Product used for unknown indication
     Route: 065
  23. CLOPIDOGREL [Suspect]
     Active Substance: CLOPIDOGREL BISULFATE
     Indication: Anticoagulant therapy
     Route: 065
  24. CLOPIDOGREL BISULFATE [Concomitant]
     Active Substance: CLOPIDOGREL BISULFATE
     Indication: Anticoagulant therapy
     Route: 065
  25. CODEINE [Suspect]
     Active Substance: CODEINE
     Indication: Product used for unknown indication
     Route: 065
  26. CYMBALTA [Suspect]
     Active Substance: DULOXETINE HYDROCHLORIDE
     Indication: Depression
     Route: 065
  27. FERROUS GLUCONATE [Suspect]
     Active Substance: FERROUS GLUCONATE
     Indication: Product used for unknown indication
     Route: 065
  28. FLOVENT [Suspect]
     Active Substance: FLUTICASONE PROPIONATE
     Indication: Chronic obstructive pulmonary disease
     Route: 065
  29. GABAPENTIN [Suspect]
     Active Substance: GABAPENTIN
     Indication: Product used for unknown indication
     Route: 065
  30. GRAVOL [Suspect]
     Active Substance: DIMENHYDRINATE
     Indication: Anxiety
     Route: 065
  31. INDOMETHACIN [Suspect]
     Active Substance: INDOMETHACIN
     Indication: Product used for unknown indication
     Route: 065
  32. INDOMETHACIN SODIUM [Suspect]
     Active Substance: INDOMETHACIN SODIUM
     Indication: Product used for unknown indication
     Route: 065
  33. INDOMETHACIN [Suspect]
     Active Substance: INDOMETHACIN
     Indication: Vomiting
     Route: 065
  34. INSULIN ASPART [Suspect]
     Active Substance: INSULIN ASPART
     Indication: Product used for unknown indication
     Route: 065
  35. KETAMINE [Suspect]
     Active Substance: KETAMINE
     Indication: Hallucination
     Route: 065
  36. MACROBID [Suspect]
     Active Substance: NITROFURANTOIN\NITROFURANTOIN MONOHYDRATE
     Indication: Product used for unknown indication
     Route: 065
  37. MOXIFLOXACIN HYDROCHLORIDE [Suspect]
     Active Substance: MOXIFLOXACIN HYDROCHLORIDE
     Indication: Rash
     Route: 065
  38. NAPROXEN SODIUM [Suspect]
     Active Substance: NAPROXEN SODIUM
     Indication: Product used for unknown indication
     Route: 065
  39. NITROFURANTOIN [Suspect]
     Active Substance: NITROFURANTOIN
     Indication: Product used for unknown indication
     Route: 065
  40. NOVORAPID [Suspect]
     Active Substance: INSULIN ASPART
     Indication: Type 2 diabetes mellitus
     Route: 065
  41. PANTOPRAZOLE SODIUM [Concomitant]
     Active Substance: PANTOPRAZOLE SODIUM
     Indication: Product used for unknown indication
     Route: 065
  42. PENICILLIN G [Suspect]
     Active Substance: PENICILLIN G
     Indication: Product used for unknown indication
     Route: 065
  43. PERINDOPRIL [Suspect]
     Active Substance: PERINDOPRIL
     Indication: Product used for unknown indication
     Route: 065
  44. POTASSIUM CHLORIDE [Suspect]
     Active Substance: POTASSIUM CHLORIDE
     Indication: Product used for unknown indication
     Route: 065
  45. PREDNISONE [Suspect]
     Active Substance: PREDNISONE
     Indication: Product used for unknown indication
     Route: 065
  46. ROSUVASTATIN CALCIUM [Concomitant]
     Active Substance: ROSUVASTATIN CALCIUM
     Indication: Blood cholesterol
     Route: 065
  47. ALBUTEROL [Suspect]
     Active Substance: ALBUTEROL
     Indication: Product used for unknown indication
     Route: 065
  48. SENOKOT [Suspect]
     Active Substance: SENNOSIDES
     Indication: Abdominal pain
     Route: 065
  49. SPIRIVA [Suspect]
     Active Substance: TIOTROPIUM BROMIDE MONOHYDRATE
     Indication: Product used for unknown indication
     Route: 065
  50. SUMATRIPTAN SUCCINATE [Concomitant]
     Active Substance: SUMATRIPTAN SUCCINATE
     Indication: Product used for unknown indication
     Route: 065
  51. VIOXX [Suspect]
     Active Substance: ROFECOXIB
     Indication: Urticaria
     Route: 065
  52. VITAMIN D3 [Suspect]
     Active Substance: CHOLECALCIFEROL
     Indication: Product used for unknown indication
     Route: 065
  53. WELLBUTRIN [Suspect]
     Active Substance: BUPROPION HYDROCHLORIDE
     Indication: Urticaria
     Route: 065
  54. NITROGLYCERIN [Suspect]
     Active Substance: NITROGLYCERIN
     Indication: Product used for unknown indication
     Route: 065
  55. CELEBREX [Suspect]
     Active Substance: CELECOXIB
     Indication: Abdominal pain upper
     Route: 065
  56. CEFUROXIME AXETIL [Suspect]
     Active Substance: CEFUROXIME AXETIL
     Indication: Malaise
     Route: 065
  57. CEFUROXIME AXETIL [Suspect]
     Active Substance: CEFUROXIME AXETIL
     Indication: Fatigue
     Route: 065
  58. CEFUROXIME AXETIL [Suspect]
     Active Substance: CEFUROXIME AXETIL
     Indication: Diarrhoea
     Route: 065
  59. CEPHALEXIN [Suspect]
     Active Substance: CEPHALEXIN
     Indication: Malaise
     Route: 065
  60. CEPHALEXIN [Suspect]
     Active Substance: CEPHALEXIN
     Indication: Dizziness
     Route: 065
  61. CODEINE [Suspect]
     Active Substance: CODEINE
     Indication: Product used for unknown indication
     Route: 065
  62. CYMBALTA [Suspect]
     Active Substance: DULOXETINE HYDROCHLORIDE
     Indication: Anxiety
     Route: 065
  63. FLOVENT [Suspect]
     Active Substance: FLUTICASONE PROPIONATE
     Indication: Asthma
     Route: 065
  64. INDOMETHACIN [Suspect]
     Active Substance: INDOMETHACIN
     Indication: Vision blurred
     Route: 065
  65. INDOMETHACIN [Suspect]
     Active Substance: INDOMETHACIN
     Indication: Abdominal pain upper
     Route: 065
  66. NAPROXEN SODIUM [Suspect]
     Active Substance: NAPROXEN SODIUM
     Indication: Pruritus
     Route: 065
  67. FLOVENT [Suspect]
     Active Substance: FLUTICASONE PROPIONATE
     Indication: Chronic obstructive pulmonary disease
     Route: 065
  68. FLOVENT [Suspect]
     Active Substance: FLUTICASONE PROPIONATE
     Indication: Asthma
     Route: 065
  69. POTASSIUM CHLORIDE [Suspect]
     Active Substance: POTASSIUM CHLORIDE
     Indication: Product used for unknown indication
     Route: 065

REACTIONS (31)
  - Abdominal pain [Not Recovered/Not Resolved]
  - Abdominal pain upper [Not Recovered/Not Resolved]
  - Agitation [Not Recovered/Not Resolved]
  - Anxiety [Not Recovered/Not Resolved]
  - Bronchitis [Not Recovered/Not Resolved]
  - Cystitis [Not Recovered/Not Resolved]
  - Depression [Not Recovered/Not Resolved]
  - Diarrhoea [Not Recovered/Not Resolved]
  - Dizziness [Not Recovered/Not Resolved]
  - Fatigue [Not Recovered/Not Resolved]
  - Feeling abnormal [Not Recovered/Not Resolved]
  - Fibromyalgia [Not Recovered/Not Resolved]
  - Fluid retention [Not Recovered/Not Resolved]
  - Hallucination [Not Recovered/Not Resolved]
  - Hyperhidrosis [Not Recovered/Not Resolved]
  - Lymphoedema [Not Recovered/Not Resolved]
  - Malaise [Not Recovered/Not Resolved]
  - Migraine [Not Recovered/Not Resolved]
  - Myocardial infarction [Not Recovered/Not Resolved]
  - Obstructive sleep apnoea syndrome [Not Recovered/Not Resolved]
  - Oesophageal pain [Not Recovered/Not Resolved]
  - Oesophageal spasm [Not Recovered/Not Resolved]
  - Pneumonia [Not Recovered/Not Resolved]
  - Pruritus [Not Recovered/Not Resolved]
  - Rash [Not Recovered/Not Resolved]
  - Sleep apnoea syndrome [Not Recovered/Not Resolved]
  - Stomatitis [Not Recovered/Not Resolved]
  - Tinnitus [Not Recovered/Not Resolved]
  - Urticaria [Not Recovered/Not Resolved]
  - Vision blurred [Not Recovered/Not Resolved]
  - Vomiting [Not Recovered/Not Resolved]
